FAERS Safety Report 8709199 (Version 2)
Quarter: 2012Q4

REPORT INFORMATION
  Report Type: 
  Country: IT (occurrence: IT)
  Receive Date: 20120806
  Receipt Date: 20120906
  Transmission Date: 20130627
  Serious: Yes (Hospitalization)
  Sender: FDA-Public Use
  Company Number: IT-PFIZER INC-2012187711

PATIENT
  Age: 73 Year
  Sex: Female

DRUGS (13)
  1. AROMASIN [Suspect]
     Indication: BREAST CANCER
     Dosage: 25 mg, 1x/day
     Route: 048
     Dates: start: 20120630, end: 20120718
  2. CIPROXIN [Suspect]
     Indication: PYREXIA
     Dosage: 500 mg, 1x/day
     Route: 048
     Dates: start: 20120714, end: 20120716
  3. ANTRA [Suspect]
     Dosage: 40 mg, 1x/day
     Route: 048
     Dates: start: 20120704, end: 20120718
  4. ZYLORIC [Suspect]
     Dosage: 300 mg, 1x/day
     Route: 048
     Dates: start: 20120704, end: 20120715
  5. AMIODARONE HYDROCHLORIDE [Concomitant]
     Indication: ATRIAL FIBRILLATION
     Dosage: 200 mg, UNK
     Route: 048
  6. CALCIUM CARBONATE [Concomitant]
     Dosage: 1 g, 1x/day
     Route: 048
  7. ARANESP [Concomitant]
     Dosage: 40 ug, weekly
     Route: 058
  8. APROVEL [Concomitant]
     Indication: HYPERTENSION
     Dosage: 150 mg, 1x/day
     Route: 048
     Dates: start: 20120714, end: 20120717
  9. ROCALTROL [Concomitant]
     Indication: SYSTEMIC SCLEROSIS
     Dosage: 0.5 ug, alternate day
     Route: 048
     Dates: start: 20120709, end: 20120713
  10. LASIX [Concomitant]
     Dosage: 25 mg, UNK
     Route: 048
     Dates: start: 20120704, end: 20120718
  11. BECOZYM [Concomitant]
     Dosage: 1 DF, UNK
     Route: 048
     Dates: start: 20120704, end: 20120718
  12. URBASON [Concomitant]
     Dosage: 20 mg, UNK
     Route: 042
  13. ENAPREN [Concomitant]
     Indication: HYPERTENSION
     Dosage: UNK
     Dates: start: 20120704, end: 20120710

REACTIONS (1)
  - Agranulocytosis [Recovered/Resolved]
